FAERS Safety Report 9774986 (Version 1)
Quarter: 2013Q4

REPORT INFORMATION
  Report Type: Spontaneous
  Country: US (occurrence: US)
  Receive Date: 20131220
  Receipt Date: 20131220
  Transmission Date: 20140711
  Serious: No
  Sender: FDA-Public Use
  Company Number: US-GLAXOSMITHKLINE-A1028445A

PATIENT
  Age: 52 Year
  Sex: Male

DRUGS (2)
  1. AVODART [Suspect]
     Indication: BENIGN PROSTATIC HYPERPLASIA
     Route: 048
     Dates: start: 20130503, end: 20130603
  2. NO CONCURRENT MEDICATION [Concomitant]

REACTIONS (4)
  - Semen volume decreased [Not Recovered/Not Resolved]
  - Libido decreased [Unknown]
  - Urine output increased [Unknown]
  - Semen discolouration [Unknown]
